FAERS Safety Report 9783176 (Version 1)
Quarter: 2013Q4

REPORT INFORMATION
  Report Type: Spontaneous
  Country: US (occurrence: US)
  Receive Date: 20131226
  Receipt Date: 20131226
  Transmission Date: 20140711
  Serious: Yes (Other)
  Sender: FDA-Public Use
  Company Number: US-ASTRAZENECA-2013SE92870

PATIENT
  Age: 78 Year
  Sex: Male
  Weight: 72.1 kg

DRUGS (2)
  1. SYMBICORT [Suspect]
     Indication: CHRONIC OBSTRUCTIVE PULMONARY DISEASE
     Dosage: 160/4.5 2 PUFFS TWICE A DAY
     Route: 055
     Dates: start: 1995, end: 201312
  2. OTHER MEDICAITONS [Concomitant]

REACTIONS (4)
  - Eye irritation [Unknown]
  - Eye disorder [Unknown]
  - Fall [Unknown]
  - Weight decreased [Unknown]
